FAERS Safety Report 16787939 (Version 3)
Quarter: 2020Q1

REPORT INFORMATION
  Report Type: Report from Study
  Country: FR (occurrence: FR)
  Receive Date: 20190909
  Receipt Date: 20200123
  Transmission Date: 20200409
  Serious: Yes (Other)
  Sender: FDA-Public Use
  Company Number: FR-GILEAD-2019-0423293

PATIENT
  Age: 46 Year
  Sex: Female
  Weight: 100 kg

DRUGS (29)
  1. MESNA. [Suspect]
     Active Substance: MESNA
     Dosage: ^200^
     Route: 065
     Dates: start: 20190801, end: 20190801
  2. BACTRIM [Concomitant]
     Active Substance: SULFAMETHOXAZOLE\TRIMETHOPRIM
     Dosage: 1,OTHER,OTHER
     Route: 048
     Dates: start: 20190730, end: 20190821
  3. CYCLOPHOSPHAMIDE. [Suspect]
     Active Substance: CYCLOPHOSPHAMIDE
     Dosage: ^500^
     Route: 042
     Dates: start: 20190802, end: 20190802
  4. SINGULAIR [Concomitant]
     Active Substance: MONTELUKAST SODIUM
     Dosage: 10,MG,DAILY
     Route: 048
  5. XYZALL [Concomitant]
     Active Substance: LEVOCETIRIZINE DIHYDROCHLORIDE
     Dosage: 5,MG,DAILY
     Route: 048
  6. LEDERFOLINE [Concomitant]
     Active Substance: LEUCOVORIN CALCIUM
     Dosage: 25,MG,OTHER
     Route: 048
     Dates: start: 20190730, end: 20190730
  7. POLARAMINE [Concomitant]
     Active Substance: DEXCHLORPHENIRAMINE MALEATE
     Dosage: 5,MG,DAILY
     Route: 041
     Dates: start: 20190805, end: 20190805
  8. POLARAMINE [Concomitant]
     Active Substance: DEXCHLORPHENIRAMINE MALEATE
     Dosage: UNK
     Dates: start: 20190813, end: 20190813
  9. VALACYCLOVIR [Concomitant]
     Active Substance: VALACYCLOVIR HYDROCHLORIDE
     Dosage: 500,MG,TWICE DAILY
     Route: 048
  10. MESNA. [Suspect]
     Active Substance: MESNA
     Dosage: ^200^
     Route: 065
     Dates: start: 20190802, end: 20190802
  11. SINGULAIR [Concomitant]
     Active Substance: MONTELUKAST SODIUM
     Dosage: 10,MG,DAILY
     Route: 048
  12. XYZALL [Concomitant]
     Active Substance: LEVOCETIRIZINE DIHYDROCHLORIDE
     Dosage: 5,MG,DAILY
     Route: 048
  13. PERFALGAN [Concomitant]
     Active Substance: ACETAMINOPHEN
     Dosage: 1,G,DAILY
     Route: 041
     Dates: start: 20190805, end: 20190805
  14. FLUDARABINE [Suspect]
     Active Substance: FLUDARABINE PHOSPHATE
     Dosage: ^30^
     Route: 042
     Dates: start: 20190802, end: 20190802
  15. CYCLOPHOSPHAMIDE. [Suspect]
     Active Substance: CYCLOPHOSPHAMIDE
     Indication: BONE MARROW CONDITIONING REGIMEN
     Dosage: ^500^
     Route: 042
     Dates: start: 20190731, end: 20190731
  16. MESNA. [Suspect]
     Active Substance: MESNA
     Indication: PROPHYLAXIS
     Dosage: ^200^
     Route: 065
     Dates: start: 20190731, end: 20190731
  17. MESNA. [Suspect]
     Active Substance: MESNA
     Dosage: ^200^
     Route: 065
     Dates: start: 20190731, end: 20190731
  18. CYCLOPHOSPHAMIDE. [Suspect]
     Active Substance: CYCLOPHOSPHAMIDE
     Dosage: ^500^
     Route: 042
     Dates: start: 20190801, end: 20190801
  19. MESNA. [Suspect]
     Active Substance: MESNA
     Dosage: ^200^
     Route: 065
     Dates: start: 20190801, end: 20190801
  20. MESNA. [Suspect]
     Active Substance: MESNA
     Dosage: ^200^
     Route: 065
     Dates: start: 20190801, end: 20190801
  21. MESNA. [Suspect]
     Active Substance: MESNA
     Dosage: ^200^
     Route: 065
     Dates: start: 20190802, end: 20190802
  22. VENTOLINE [SALBUTAMOL] [Concomitant]
     Active Substance: ALBUTEROL SULFATE
     Dosage: 1,OTHER,AS NECESSARY
     Route: 055
  23. XYZALL [Concomitant]
     Active Substance: LEVOCETIRIZINE DIHYDROCHLORIDE
     Dosage: 5,MG,DAILY
     Route: 048
  24. AXICABTAGENE CILOLEUCEL [Suspect]
     Active Substance: AXICABTAGENE CILOLEUCEL
     Indication: NON-HODGKIN^S LYMPHOMA UNSPECIFIED HISTOLOGY INDOLENT
     Dosage: 68 ML
     Route: 042
     Dates: start: 20190805, end: 20190805
  25. FLUDARABINE [Suspect]
     Active Substance: FLUDARABINE PHOSPHATE
     Indication: BONE MARROW CONDITIONING REGIMEN
     Dosage: ^30^
     Route: 042
     Dates: start: 20190731, end: 20190731
  26. MESNA. [Suspect]
     Active Substance: MESNA
     Dosage: ^200^
     Route: 065
     Dates: start: 20190731, end: 20190731
  27. SINGULAIR [Concomitant]
     Active Substance: MONTELUKAST SODIUM
     Dosage: 10,MG,DAILY
     Route: 048
  28. FLUDARABINE [Suspect]
     Active Substance: FLUDARABINE PHOSPHATE
     Dosage: ^30^
     Route: 042
     Dates: start: 20190801, end: 20190801
  29. MESNA. [Suspect]
     Active Substance: MESNA
     Dosage: ^200^
     Route: 065
     Dates: start: 20190802, end: 20190802

REACTIONS (5)
  - Hypoxia [Recovered/Resolved]
  - Confusional state [Recovered/Resolved]
  - Cytokine release syndrome [Recovered/Resolved]
  - Pyrexia [Recovered/Resolved]
  - Tachycardia [Recovered/Resolved]

NARRATIVE: CASE EVENT DATE: 20190808
